FAERS Safety Report 7864706-4 (Version None)
Quarter: 2011Q4

REPORT INFORMATION
  Report Type: 
  Country: None (occurrence: None)
  Receive Date: 20111028
  Receipt Date: 20111017
  Transmission Date: 20120403
  Serious: Yes (Disabling, Other)
  Sender: FDA-Public Use
  Company Number: FR-PFIZER INC-2011245622

PATIENT
  Age: 64 Year
  Sex: Male

DRUGS (4)
  1. EUPRESSYL [Suspect]
     Indication: AORTIC DISSECTION
     Dosage: 25-50MG PER HOUR
     Route: 042
     Dates: start: 20110919, end: 20110920
  2. XANAX [Suspect]
     Indication: ANXIETY
     Dosage: 1 DF, SINGLE
     Route: 048
     Dates: start: 20110919, end: 20110919
  3. ATENOLOL [Suspect]
     Dosage: 1 DF, DAILY
     Route: 048
     Dates: start: 20110919, end: 20110922
  4. NEXIUM [Suspect]
     Dosage: 1 DF DAILY
     Route: 048
     Dates: start: 20110919

REACTIONS (2)
  - SURGERY [None]
  - PRIAPISM [None]
